FAERS Safety Report 5391632-5 (Version None)
Quarter: 2007Q3

REPORT INFORMATION
  Report Type: 
  Country: None (occurrence: None)
  Receive Date: 20070719
  Receipt Date: 20070709
  Transmission Date: 20080115
  Serious: Yes (Hospitalization)
  Sender: FDA-Public Use
  Company Number: US-GILEAD-2007-0012392

PATIENT
  Sex: Female
  Weight: 68.4 kg

DRUGS (19)
  1. AMBRISENTAN [Suspect]
     Indication: PULMONARY HYPERTENSION
     Dates: start: 20070503, end: 20070604
  2. SILDENAFIL CITRATE [Concomitant]
     Indication: PULMONARY HYPERTENSION
     Dates: start: 20050827
  3. FUROSEMIDE [Concomitant]
     Indication: PULMONARY HYPERTENSION
     Route: 048
     Dates: start: 20070611
  4. FUROSEMIDE [Concomitant]
     Route: 048
     Dates: start: 20070611, end: 20070611
  5. FUROSEMIDE [Concomitant]
     Route: 048
     Dates: start: 20070610, end: 20070611
  6. FUROSEMIDE [Concomitant]
     Route: 042
     Dates: start: 20070607, end: 20070609
  7. FUROSEMIDE [Concomitant]
     Route: 042
     Dates: start: 20070606, end: 20070606
  8. FUROSEMIDE [Concomitant]
     Route: 042
     Dates: start: 20070605, end: 20070605
  9. FUROSEMIDE [Concomitant]
     Route: 048
     Dates: start: 20070516, end: 20070605
  10. FUROSEMIDE [Concomitant]
     Route: 048
     Dates: start: 20070510, end: 20070605
  11. SPIRONOLACTIONE [Concomitant]
     Indication: PULMONARY HYPERTENSION
     Route: 048
     Dates: start: 20060510
  12. PROTONIX [Concomitant]
     Indication: OESOPHAGEAL ULCER
     Route: 048
     Dates: start: 20051025
  13. TOPROL-XL [Concomitant]
     Route: 048
     Dates: end: 20070611
  14. PLAQUENIL [Concomitant]
     Indication: CONNECTIVE TISSUE DISORDER
     Route: 048
     Dates: start: 20060510
  15. VITRON-C [Concomitant]
     Indication: VITAMIN SUPPLEMENTATION
     Route: 048
  16. ARTIFICIAL TEARS [Concomitant]
     Indication: SJOGREN'S SYNDROME
  17. OXYGEN [Concomitant]
     Indication: HYPOXIA
     Route: 055
  18. IMODIUM [Concomitant]
     Route: 048
  19. ERYTHROMYCIN [Concomitant]

REACTIONS (3)
  - OEDEMA [None]
  - RENAL IMPAIRMENT [None]
  - RIGHT VENTRICULAR FAILURE [None]
